FAERS Safety Report 10515541 (Version 1)
Quarter: 2014Q4

REPORT INFORMATION
  Report Type: Spontaneous
  Country: AT (occurrence: None)
  Receive Date: 20141009
  Receipt Date: 20141009
  Transmission Date: 20150528
  Serious: Yes (Other)
  Sender: FDA-Public Use
  Company Number: COR_00101_2014

PATIENT
  Age: 27 Year
  Sex: Female

DRUGS (4)
  1. VINCRISTINE (VINCRISTINE) [Suspect]
     Active Substance: VINCRISTINE
     Indication: EWING^S SARCOMA
     Dosage: ON DAY 1
  2. ETOPOSIDE. [Suspect]
     Active Substance: ETOPOSIDE
     Indication: EWING^S SARCOMA
     Dosage: PER DAY AND DAYS 1-3
  3. IFOSFAMIDE (IFOSFAMIDE) [Suspect]
     Active Substance: IFOSFAMIDE
     Indication: EWING^S SARCOMA
     Dosage: PER DAY ON DAYS 1-3
  4. DOXORUBICIN (DOXORUBICIN) [Suspect]
     Active Substance: DOXORUBICIN
     Indication: EWING^S SARCOMA
     Dosage: PER DAY ON DAYS 1-3

REACTIONS (3)
  - Oligohydramnios [None]
  - Abdominal pain lower [None]
  - Exposure during pregnancy [None]
